FAERS Safety Report 5069852-9 (Version None)
Quarter: 2006Q3

REPORT INFORMATION
  Report Type: 
  Country: None (occurrence: None)
  Receive Date: 20060731
  Receipt Date: 20060718
  Transmission Date: 20061208
  Serious: Yes (Hospitalization)
  Sender: FDA-Public Use
  Company Number: 2006090044

PATIENT
  Age: 23 Year
  Sex: Male

DRUGS (1)
  1. TROBICIN (SPECTINOMYCIN HYDROCHLORIDE PENTAHYDRATE) [Suspect]
     Indication: GONORRHOEA
     Dosage: 2 GRAM, 1 IN 1 D, INTRAMUSCULAR
     Route: 030
     Dates: start: 20060713

REACTIONS (3)
  - HYPERSENSITIVITY [None]
  - LOSS OF CONSCIOUSNESS [None]
  - MUSCLE SPASMS [None]
